FAERS Safety Report 7502135-3 (Version None)
Quarter: 2011Q2

REPORT INFORMATION
  Report Type: 
  Country: None (occurrence: None)
  Receive Date: 20110525
  Receipt Date: 20110518
  Transmission Date: 20111010
  Serious: Yes (Death, Life-Threatening, Hospitalization, Other)
  Sender: FDA-Public Use
  Company Number: FR-PFIZER INC-2010153713

PATIENT
  Age: 75 Year
  Sex: Male
  Weight: 67 kg

DRUGS (70)
  1. ARGATROBAN [Suspect]
     Dosage: 0.12 MCG/KG/MIN (0.5 ML/HR)
     Route: 042
     Dates: start: 20101112, end: 20101113
  2. PROPOFOL [Concomitant]
     Indication: SEDATION
     Dosage: UNK (4 ML, CONTINUOUS)
     Route: 042
     Dates: start: 20101026, end: 20101029
  3. KETAMINE [Concomitant]
     Indication: SEDATION
  4. GLUCOSE [Concomitant]
     Indication: POSITIVE CARDIAC INOTROPIC EFFECT
     Dosage: UNK (10 ML, CONTINUOUS)
     Route: 042
     Dates: start: 20101025, end: 20101026
  5. PARACETAMOL [Concomitant]
     Indication: PAIN PROPHYLAXIS
     Dosage: 1 G, 3X/DAY
     Route: 042
     Dates: start: 20101026, end: 20101028
  6. PARACETAMOL [Concomitant]
     Dosage: 1 G, 2X/DAY
     Route: 042
     Dates: start: 20101029, end: 20101029
  7. ACTRAPID [Concomitant]
     Indication: HYPERGLYCAEMIA
     Dosage: MAX DOSE: 8 UI/H (2 IU, CONTINUOUS)
     Route: 042
     Dates: start: 20101025, end: 20101026
  8. ACTRAPID [Concomitant]
     Dosage: 5 IU, 2X/DAY
     Route: 042
     Dates: start: 20101025, end: 20101026
  9. COROTROPE [Concomitant]
     Dosage: 1 MG, 1X/DAY
     Route: 042
     Dates: start: 20101105, end: 20101107
  10. LEDERFOLIN [Concomitant]
     Indication: SUPPLEMENTATION THERAPY
     Dosage: 5 MG, 1X/DAY
     Dates: start: 20101029, end: 20101031
  11. HYDROCORTISONE HYDROGEN SUCCINATE [Concomitant]
     Indication: INFLAMMATION
     Dosage: 8.33 MG, UNK
     Route: 042
     Dates: start: 20101109, end: 20101114
  12. AMOXICILLIN AND CLAVULANATE POTASSIUM [Concomitant]
     Indication: INFECTION
     Dosage: 3 G, 2X/DAY
     Route: 042
     Dates: start: 20101103, end: 20101110
  13. NOREPINEPHRINE BITARTRATE [Concomitant]
     Dosage: UNK (0.05 MG, CONTINUOUS)
     Route: 042
     Dates: start: 20101026, end: 20101027
  14. ASPEGIC 325 [Concomitant]
     Indication: ANTICOAGULANT THERAPY
     Dosage: 100 MG, 1X/DAY
     Route: 048
     Dates: start: 20101031, end: 20101112
  15. KETAMINE [Concomitant]
     Indication: ANALGESIC THERAPY
     Dosage: 8 MG, UNK
     Route: 042
     Dates: start: 20101031, end: 20101113
  16. PLASMION [Concomitant]
     Dosage: 250 ML, 2X/DAY
     Route: 042
     Dates: start: 20101105, end: 20101105
  17. KAYEXALATE [Concomitant]
     Indication: HYPERKALAEMIA
     Dosage: 3 G, 1X/DAY
     Route: 048
     Dates: start: 20101027, end: 20101027
  18. ACLOTINE [Concomitant]
     Indication: ANTITHROMBIN III DEFICIENCY
     Dosage: 2500 IU, 1X/DAY
     Route: 042
     Dates: start: 20101104, end: 20101104
  19. HEPARIN SODIUM [Concomitant]
     Indication: EXTRACORPOREAL CIRCULATION
     Dosage: 30000 IU, 1X/DAY
     Route: 042
     Dates: start: 20101025, end: 20101025
  20. VOLUVEN [Concomitant]
     Indication: HYPOVOLAEMIA
     Dosage: 250 ML, 2X/DAY
     Route: 042
     Dates: start: 20101026, end: 20101027
  21. VOLUVEN [Concomitant]
     Dosage: 250 ML, 1X/DAY
     Route: 042
     Dates: start: 20101026, end: 20101026
  22. VOLUVEN [Concomitant]
     Dosage: 250 ML, 2X/DAY
     Route: 042
     Dates: start: 20101102, end: 20101102
  23. HYDROCORTISONE HYDROGEN SUCCINATE [Concomitant]
     Indication: VASOPLEGIA SYNDROME
  24. NOREPINEPHRINE BITARTRATE [Concomitant]
     Indication: HAEMODYNAMIC INSTABILITY
     Dosage: MAX DOSE: 7 MG/H (0.85 MG, CONTINUOUS)
     Route: 042
     Dates: start: 20101031, end: 20101114
  25. NOREPINEPHRINE BITARTRATE [Concomitant]
     Dosage: MAX DOSE: 2.4 MG/H (0.05 MG, CONTINUOUS)
     Route: 042
     Dates: start: 20101027, end: 20101029
  26. ASPEGIC 325 [Concomitant]
     Indication: MYOCARDIAL ISCHAEMIA
  27. PARACETAMOL [Concomitant]
     Dosage: 1 G, 4X/DAY
     Route: 042
     Dates: start: 20101101, end: 20101101
  28. ESOMEPRAZOLE [Concomitant]
     Dosage: 40 MG, 1X/DAY
     Route: 042
     Dates: start: 20101108, end: 20101108
  29. COROTROPE [Concomitant]
     Dosage: 1 MG, 1X/DAY
     Route: 042
     Dates: start: 20101106, end: 20101106
  30. NIMBEX [Concomitant]
     Indication: SEDATION
     Dosage: 10 MG, 1X/DAY
     Route: 042
     Dates: start: 20101031, end: 20101031
  31. CALCIUM FOLINATE [Concomitant]
     Indication: MEDICAL DIET
     Dosage: 5 MG, 1X/DAY
     Route: 042
     Dates: start: 20101107, end: 20101108
  32. PROPOFOL [Concomitant]
     Dosage: MAX DOSE: 8 ML/H (1 ML, CONTINUOUS)
     Route: 042
     Dates: start: 20101105, end: 20101114
  33. ADRENALIN IN OIL INJ [Concomitant]
     Indication: HAEMODYNAMIC INSTABILITY
     Dosage: MAX DOSE: 1.66 MG/H (0.02 MG, CONTINUOUS)
     Route: 042
     Dates: start: 20101026, end: 20101107
  34. PLASMION [Concomitant]
     Dosage: 250 ML, 2X/DAY
     Route: 042
     Dates: start: 20101028, end: 20101028
  35. PARACETAMOL [Concomitant]
     Dosage: 1 G, 2X/DAY
     Route: 042
     Dates: start: 20101031, end: 20101031
  36. PARACETAMOL [Concomitant]
     Dosage: 1 G, 1X/DAY
     Route: 042
     Dates: start: 20101102, end: 20101102
  37. LEDERFOLIN [Concomitant]
     Dosage: 5 MG, 1X/DAY
     Route: 042
     Dates: start: 20101109, end: 20101113
  38. MIDAZOLAM HYDROCHLORIDE [Concomitant]
     Indication: SEDATION
     Dosage: 2 MG, 1X/DAY
     Route: 042
     Dates: start: 20101105, end: 20101105
  39. ARGATROBAN [Suspect]
     Indication: HEPARIN-INDUCED THROMBOCYTOPENIA
     Dosage: 0.12 MCG/KG/MIN (0.5 ML/HR)
     Route: 042
     Dates: start: 20101105, end: 20101110
  40. VANCOMYCIN [Concomitant]
     Dosage: 1 G, 1X/DAY
     Dates: start: 20101105, end: 20101105
  41. PARACETAMOL [Concomitant]
     Dosage: 1 G, 3X/DAY
     Route: 042
     Dates: start: 20101030, end: 20101030
  42. ESOMEPRAZOLE [Concomitant]
     Indication: PROPHYLAXIS AGAINST GASTROINTESTINAL ULCER
     Dosage: 40 MG, 1X/DAY
     Route: 042
     Dates: start: 20101031, end: 20101031
  43. FUROSEMIDE [Concomitant]
     Indication: OLIGURIA
     Dosage: 20 MG, 2X/DAY
     Dates: start: 20101030, end: 20101101
  44. VITAMIN B-12 [Concomitant]
     Indication: SUPPLEMENTATION THERAPY
     Dosage: 1000 MG, 1X/DAY
     Route: 042
     Dates: start: 20101029, end: 20101029
  45. EPHEDRINE [Concomitant]
     Indication: HYPOTENSION
     Dosage: 15 MG, 1X/DAY
     Route: 042
     Dates: start: 20101031, end: 20101031
  46. VOLUVEN [Concomitant]
     Dosage: 250 ML, 2X/DAY
     Route: 042
     Dates: start: 20101109, end: 20101109
  47. OMEPRAZOLE [Concomitant]
     Indication: PROPHYLAXIS AGAINST GASTROINTESTINAL ULCER
     Dosage: 40 MG, 1X/DAY
     Route: 042
     Dates: start: 20101029, end: 20101030
  48. NEXIUM [Concomitant]
     Indication: GASTRIC ULCER
     Dosage: 40 MG, 1X/DAY
     Route: 042
     Dates: start: 20101025, end: 20101028
  49. PLASMION [Concomitant]
     Dosage: 250 ML, 2X/DAY
     Route: 042
     Dates: start: 20101107, end: 20101107
  50. LEDERFOLIN [Concomitant]
     Dosage: 5 MG, 1X/DAY
     Route: 042
     Dates: start: 20101105, end: 20101106
  51. VOLUVEN [Concomitant]
     Dosage: 250 ML, 1X/DAY
     Route: 042
     Dates: start: 20101103, end: 20101103
  52. OMEPRAZOLE [Concomitant]
     Dosage: 40 MG, 1X/DAY
     Route: 042
     Dates: start: 20101109, end: 20101109
  53. REMIFENTANIL [Concomitant]
     Indication: SEDATION
     Dosage: MAX DOSE: 0.8 MG/H (CONTINUOUS)
     Route: 042
     Dates: start: 20101030, end: 20101114
  54. PROPOFOL [Concomitant]
     Dosage: MAX DOSE: 6 ML/H (4 ML, CONTINUOUS)
     Route: 042
     Dates: start: 20101031, end: 20101101
  55. HYDROCORTISONE HYDROGEN SUCCINATE [Concomitant]
     Indication: ADRENAL INSUFFICIENCY
  56. PLASMION [Concomitant]
     Indication: HYPOVOLAEMIA
     Dosage: 500 ML, 1X/DAY
     Route: 042
     Dates: start: 20101026, end: 20101026
  57. PLASMION [Concomitant]
     Dosage: 500 ML, 1X/DAY
     Route: 042
     Dates: start: 20101031, end: 20101031
  58. COROTROPE [Concomitant]
     Indication: HAEMODYNAMIC INSTABILITY
     Dosage: 1 MG, 1X/DAY
     Route: 042
     Dates: start: 20101028, end: 20101029
  59. CORDARONE [Concomitant]
     Indication: ARRHYTHMIA PROPHYLAXIS
     Dosage: MAX DOSE: 25 MG/H (6.25 MG, CONTINUOUS)
     Route: 042
     Dates: start: 20101026, end: 20101114
  60. VOLUVEN [Concomitant]
     Dosage: 500 ML, 1X/DAY
     Route: 042
     Dates: start: 20101029, end: 20101029
  61. OMEPRAZOLE [Concomitant]
     Dosage: 40 MG, 1X/DAY
     Route: 042
     Dates: start: 20101101, end: 20101107
  62. AMIODARONE [Concomitant]
     Indication: ARRHYTHMIA
     Dosage: UNK
     Route: 042
     Dates: start: 20101025, end: 20101114
  63. VANCOMYCIN [Concomitant]
     Indication: INFECTION
     Dosage: .083 G, 1X/DAY
     Route: 042
     Dates: start: 20101107, end: 20101114
  64. INSULIN PORCINE [Concomitant]
     Indication: POSITIVE CARDIAC INOTROPIC EFFECT
     Dosage: 300 IU, CONTINUOUS
     Route: 042
     Dates: start: 20101025, end: 20101026
  65. PLASMION [Concomitant]
     Dosage: 250 ML, 3X/DAY
     Route: 042
     Dates: start: 20101108, end: 20101108
  66. ACTRAPID [Concomitant]
     Dosage: 4 IU, 1X/DAY
     Route: 042
     Dates: start: 20101025, end: 20101025
  67. COROTROPE [Concomitant]
     Dosage: 2 MG, 1X/DAY
     Route: 042
     Dates: start: 20101101, end: 20101101
  68. VITAMIN K TAB [Concomitant]
     Indication: PARENTERAL NUTRITION
     Dosage: 5 MG, 1X/DAY
     Route: 042
     Dates: start: 20101030, end: 20101030
  69. ALBUMIN HUMAN [Concomitant]
     Indication: HYPOALBUMINAEMIA
     Dosage: UNK
     Route: 042
     Dates: start: 20101026, end: 20101109
  70. LASIX [Concomitant]
     Indication: OLIGURIA
     Dosage: 20 MG, 1X/DAY
     Route: 042
     Dates: start: 20101027, end: 20101028

REACTIONS (3)
  - MULTI-ORGAN FAILURE [None]
  - RECTAL HAEMORRHAGE [None]
  - HAEMATEMESIS [None]
